FAERS Safety Report 5747557-6 (Version None)
Quarter: 2008Q2

REPORT INFORMATION
  Report Type: 
  Country: None (occurrence: None)
  Receive Date: 20080523
  Receipt Date: 20080515
  Transmission Date: 20081010
  Serious: Yes (Other)
  Sender: FDA-Public Use
  Company Number: CA-ASTRAZENECA-2008UW10051

PATIENT
  Age: 66 Year
  Sex: Female

DRUGS (2)
  1. RHINOCORT [Suspect]
     Indication: NASAL CONGESTION
     Route: 045
     Dates: start: 20080201
  2. RHINOCORT [Suspect]
     Route: 045
     Dates: start: 20080501, end: 20080501

REACTIONS (2)
  - DIABETES MELLITUS [None]
  - EYE PAIN [None]
